FAERS Safety Report 6489645-5 (Version None)
Quarter: 2009Q4

REPORT INFORMATION
  Report Type: 
  Country: None (occurrence: None)
  Receive Date: 20091210
  Receipt Date: 20091203
  Transmission Date: 20100525
  Serious: Yes (Hospitalization)
  Sender: FDA-Public Use
  Company Number: US-GENENTECH-295372

PATIENT
  Sex: Male
  Weight: 66 kg

DRUGS (5)
  1. RITUXAN [Suspect]
     Indication: B-CELL LYMPHOMA
     Dosage: UNK
     Route: 042
  2. CYCLOPHOSPHAMIDE [Concomitant]
     Indication: B-CELL LYMPHOMA
  3. DOXORUBICIN [Concomitant]
     Indication: B-CELL LYMPHOMA
  4. VINCRISTINE [Concomitant]
     Indication: B-CELL LYMPHOMA
  5. PREDNISONE [Concomitant]
     Indication: B-CELL LYMPHOMA

REACTIONS (3)
  - FEBRILE NEUTROPENIA [None]
  - HERPES SIMPLEX [None]
  - MOUTH ULCERATION [None]
